FAERS Safety Report 21634720 (Version 1)
Quarter: 2022Q4

REPORT INFORMATION
  Report Type: Spontaneous
  Country: US (occurrence: US)
  Receive Date: 20221123
  Receipt Date: 20221123
  Transmission Date: 20230113
  Serious: No
  Sender: FDA-Public Use
  Company Number: US-Fresenius Medical Care Renal Therapies Group-FMC-2211-001784

PATIENT
  Sex: Female

DRUGS (2)
  1. DELFLEX WITH DEXTROSE 1.5% LOW MAGNESIUM LOW CALCIUM [Suspect]
     Active Substance: CALCIUM CHLORIDE\DEXTROSE\MAGNESIUM CHLORIDE\SODIUM CHLORIDE\SODIUM LACTATE
     Indication: End stage renal disease
     Dosage: TTV 9700 ML, TX BASED, FFV 2300 ML, DWT 01 HOUR 41 MINUTES, TDV 2100 ML, LFV 500 ML, TFV 2100 ML, TS
     Route: 033
  2. DELFLEX WITH DEXTROSE 2.5% LOW MAGNESIUM LOW CALCIUM [Suspect]
     Active Substance: CALCIUM CHLORIDE\DEXTROSE\MAGNESIUM CHLORIDE\SODIUM CHLORIDE\SODIUM LACTATE
     Indication: End stage renal disease
     Dosage: TTV 9700 ML, TX BASED, FFV 2300 ML, DWT 01 HOUR 41 MINUTES, TDV 2100 ML, LFV 500 ML, TFV 2100 ML, TS
     Route: 033

REACTIONS (1)
  - Arthralgia [Unknown]
